FAERS Safety Report 21170037 (Version 10)
Quarter: 2023Q2

REPORT INFORMATION
  Report Type: Spontaneous
  Country: CA (occurrence: CA)
  Receive Date: 20220804
  Receipt Date: 20230502
  Transmission Date: 20230722
  Serious: Yes (Other)
  Sender: FDA-Public Use
  Company Number: CA-CELLTRION INC.-2022CA010889

PATIENT

DRUGS (10)
  1. INFLECTRA [Suspect]
     Active Substance: INFLIXIMAB-DYYB
     Indication: Crohn^s disease
     Dosage: 800 MG (10 MG/KG), WEEKS 0,2,6 THEN EVERY 8 WEEKS
     Route: 042
     Dates: start: 20220722
  2. INFLECTRA [Suspect]
     Active Substance: INFLIXIMAB-DYYB
     Dosage: 10 MG/KG  WEEKS 0,2,6 THEN EVERY 8 WEEKS
     Route: 042
     Dates: start: 20220722, end: 20221223
  3. INFLECTRA [Suspect]
     Active Substance: INFLIXIMAB-DYYB
     Dosage: 800 MG (10 MG/KG), WEEKS 0,2,6 THEN EVERY 8 WEEKS
     Route: 042
     Dates: start: 20220804
  4. INFLECTRA [Suspect]
     Active Substance: INFLIXIMAB-DYYB
     Dosage: 800 MG (10 MG/KG), WEEKS 0,2,6 THEN EVERY 8 WEEKS
     Route: 042
     Dates: start: 20220902
  5. INFLECTRA [Suspect]
     Active Substance: INFLIXIMAB-DYYB
     Dosage: 10 MG/KG, WEEKS 0,2,6 THEN EVERY 8 WEEKS
     Route: 042
     Dates: start: 20221028
  6. INFLECTRA [Suspect]
     Active Substance: INFLIXIMAB-DYYB
     Dosage: 10 MG/KG, WEEKS 0,2,6 THEN EVERY 8 WEEKS
     Route: 042
     Dates: start: 20221223, end: 20221223
  7. INFLECTRA [Suspect]
     Active Substance: INFLIXIMAB-DYYB
     Dosage: 10 MG/KG, EVERY 6 WEEKS
     Route: 042
     Dates: start: 20230210
  8. INFLECTRA [Suspect]
     Active Substance: INFLIXIMAB-DYYB
     Dosage: 10 MG/KG, EVERY 6 WEEKS
     Route: 042
     Dates: start: 20230210
  9. INFLECTRA [Suspect]
     Active Substance: INFLIXIMAB-DYYB
     Dosage: 10 MG/KG, EVERY 6 WEEKS
     Route: 042
     Dates: start: 20230324
  10. INFLECTRA [Suspect]
     Active Substance: INFLIXIMAB-DYYB
     Dosage: 10MG/KG, 4 WEEKS
     Route: 042
     Dates: start: 20230421

REACTIONS (12)
  - Weight increased [Unknown]
  - Drug level decreased [Not Recovered/Not Resolved]
  - Off label use [Unknown]
  - Off label use [Unknown]
  - Off label use [Unknown]
  - Intentional product use issue [Unknown]
  - Incorrect dose administered [Unknown]
  - Condition aggravated [Recovered/Resolved]
  - Stenosis [Unknown]
  - Iron deficiency anaemia [Unknown]
  - Headache [Unknown]
  - Hypertension [Unknown]

NARRATIVE: CASE EVENT DATE: 20220722
